FAERS Safety Report 23972623 (Version 1)
Quarter: 2024Q2

REPORT INFORMATION
  Report Type: Spontaneous
  Country: SG (occurrence: SG)
  Receive Date: 20240613
  Receipt Date: 20240613
  Transmission Date: 20240716
  Serious: Yes (Hospitalization)
  Sender: FDA-Public Use
  Company Number: SG-SA-SAC20240607001233

PATIENT
  Sex: Female

DRUGS (5)
  1. ZOLPIDEM TARTRATE [Suspect]
     Active Substance: ZOLPIDEM TARTRATE
     Dosage: 2 DF (BEFORE MEAL)
     Route: 065
  2. SEROQUEL [Concomitant]
     Active Substance: QUETIAPINE FUMARATE
     Dosage: 3 DF, QD (PER NIGHT)
  3. XANAX [Concomitant]
     Active Substance: ALPRAZOLAM
     Dosage: 2 DF, QD (AT NIGHT)
  4. VALDOXAN [Concomitant]
     Active Substance: AGOMELATINE
     Dosage: 2 DF, QD (AT NIGHT)
  5. DAYVIGO [Concomitant]
     Active Substance: LEMBOREXANT
     Dosage: 2-3 (AT NIGHT)

REACTIONS (1)
  - Migraine [Unknown]
